FAERS Safety Report 5662611-5 (Version None)
Quarter: 2008Q1

REPORT INFORMATION
  Report Type: 
  Country: None (occurrence: None)
  Receive Date: 20080313
  Receipt Date: 20080303
  Transmission Date: 20080703
  Serious: Yes (Hospitalization)
  Sender: FDA-Public Use
  Company Number: AU-ABBOTT-08P-008-0440674-00

PATIENT

DRUGS (1)
  1. TEVETEN [Suspect]
     Indication: HYPERTENSION

REACTIONS (3)
  - DIARRHOEA [None]
  - INFLAMMATORY BOWEL DISEASE [None]
  - INTESTINAL OBSTRUCTION [None]
